FAERS Safety Report 16725718 (Version 3)
Quarter: 2019Q3

REPORT INFORMATION
  Report Type: Spontaneous
  Country: TR (occurrence: TR)
  Receive Date: 20190821
  Receipt Date: 20190917
  Transmission Date: 20191005
  Serious: Yes (Life-Threatening, Hospitalization, Other)
  Sender: FDA-Public Use
  Company Number: TR-PFIZER INC-2019354259

PATIENT
  Age: 3 Month
  Sex: Male
  Weight: 4.6 kg

DRUGS (1)
  1. MEROPENEM. [Suspect]
     Active Substance: MEROPENEM
     Indication: DEVICE MALFUNCTION
     Dosage: 40 MG/KG, 3X/DAY
     Route: 042
     Dates: start: 20180109, end: 20180209

REACTIONS (5)
  - Endocarditis candida [Recovered/Resolved]
  - Atrial thrombosis [Recovered/Resolved]
  - Systemic candida [Recovered/Resolved]
  - Seizure [Recovered/Resolved]
  - Septic embolus [Recovered/Resolved]

NARRATIVE: CASE EVENT DATE: 20180128
